FAERS Safety Report 7314904-3 (Version None)
Quarter: 2011Q1

REPORT INFORMATION
  Report Type: 
  Country: None (occurrence: None)
  Receive Date: 20110225
  Receipt Date: 20100126
  Transmission Date: 20110831
  Serious: No
  Sender: FDA-Public Use
  Company Number: US-MYLANLABS-2010S1001343

PATIENT
  Sex: Male

DRUGS (1)
  1. AMNESTEEM [Suspect]

REACTIONS (6)
  - ARTHRALGIA [None]
  - LIP DRY [None]
  - EPISTAXIS [None]
  - MUSCULOSKELETAL PAIN [None]
  - BACK PAIN [None]
  - VISION BLURRED [None]
